FAERS Safety Report 15781976 (Version 4)
Quarter: 2020Q1

REPORT INFORMATION
  Report Type: Spontaneous
  Country: US (occurrence: US)
  Receive Date: 20190102
  Receipt Date: 20200218
  Transmission Date: 20200409
  Serious: Yes (Other)
  Sender: FDA-Public Use
  Company Number: US-PFIZER INC-2018536086

PATIENT
  Age: 66 Year
  Sex: Female

DRUGS (1)
  1. GENOTROPIN MQ [Suspect]
     Active Substance: SOMATROPIN
     Dosage: 0.6 MG, DAILY

REACTIONS (13)
  - Influenza [Recovered/Resolved]
  - Blood urea increased [Unknown]
  - Fatigue [Unknown]
  - Chills [Unknown]
  - Blood potassium increased [Unknown]
  - Hyperhidrosis [Unknown]
  - Blood creatinine increased [Unknown]
  - Alanine aminotransferase decreased [Unknown]
  - Malaise [Unknown]
  - Blood thyroid stimulating hormone decreased [Unknown]
  - Cortisol decreased [Unknown]
  - Blood urea nitrogen/creatinine ratio increased [Unknown]
  - Immune system disorder [Unknown]

NARRATIVE: CASE EVENT DATE: 201709
